FAERS Safety Report 23814975 (Version 1)
Quarter: 2024Q2

REPORT INFORMATION
  Report Type: Spontaneous
  Country: US (occurrence: None)
  Receive Date: 20240502
  Receipt Date: 20240502
  Transmission Date: 20240716
  Serious: No
  Sender: FDA-Public Use
  Company Number: None

PATIENT
  Age: 9 Year
  Sex: Male
  Weight: 36.29 kg

DRUGS (1)
  1. DUPIXENT [Suspect]
     Active Substance: DUPILUMAB
     Indication: Eosinophilic oesophagitis
     Dosage: 300 MG EVERY 14 DAYS SUBCUTANEOUS?
     Route: 058
     Dates: start: 20240217

REACTIONS (4)
  - Injection site rash [None]
  - Injection site pruritus [None]
  - Urticaria [None]
  - Injection site pain [None]

NARRATIVE: CASE EVENT DATE: 20240410
